FAERS Safety Report 5701032-3 (Version None)
Quarter: 2008Q2

REPORT INFORMATION
  Report Type: 
  Country: None (occurrence: None)
  Receive Date: 20080410
  Receipt Date: 20080328
  Transmission Date: 20081010
  Serious: Yes (Disabling)
  Sender: FDA-Public Use
  Company Number: US-WYE-H03343308

PATIENT
  Sex: Female

DRUGS (3)
  1. EFFEXOR XR [Suspect]
     Indication: ANXIETY
     Dosage: UNKNOWN
     Route: 048
     Dates: start: 20080310, end: 20080316
  2. EFFEXOR XR [Suspect]
     Indication: ATTENTION DEFICIT/HYPERACTIVITY DISORDER
     Dosage: 75 MG, FREQUENCY NOT SPECIFIED
     Route: 048
     Dates: start: 20080317, end: 20080323
  3. EFFEXOR XR [Suspect]
     Dosage: 37.5 MG, FREQUENCY NOT SPECIFIED
     Route: 048
     Dates: start: 20080324

REACTIONS (8)
  - ANGER [None]
  - ANXIETY [None]
  - BLOOD PRESSURE INCREASED [None]
  - DRUG WITHDRAWAL SYNDROME [None]
  - DYSPHAGIA [None]
  - EATING DISORDER [None]
  - FATIGUE [None]
  - MUSCLE TIGHTNESS [None]
